FAERS Safety Report 4801382-9 (Version None)
Quarter: 2005Q4

REPORT INFORMATION
  Report Type: 
  Country: None (occurrence: None)
  Receive Date: 20051017
  Receipt Date: 20051007
  Transmission Date: 20060501
  Serious: Yes (Hospitalization)
  Sender: FDA-Public Use
  Company Number: JP-ABBOTT-05P-087-0313445-00

PATIENT
  Sex: Male

DRUGS (25)
  1. NORVIR [Suspect]
     Indication: HIV INFECTION
     Route: 048
     Dates: start: 20041225, end: 20050331
  2. LAMIVUDINE [Suspect]
     Indication: HIV INFECTION
     Route: 048
     Dates: start: 20040705, end: 20050331
  3. LAMIVUDINE AND STAVUDINE [Suspect]
     Indication: HIV INFECTION
     Route: 048
     Dates: start: 20040401, end: 20040610
  4. EFAVIRENZ [Suspect]
     Indication: HIV INFECTION
     Route: 048
     Dates: start: 20040401, end: 20040610
  5. EFAVIRENZ [Suspect]
     Route: 048
     Dates: start: 20040705, end: 20041104
  6. ATAZANAVIR [Suspect]
     Indication: HIV INFECTION
     Route: 048
     Dates: start: 20050124, end: 20050331
  7. ATAZANAVIR [Suspect]
     Route: 048
     Dates: start: 20041105, end: 20050123
  8. TENOFOVIR [Suspect]
     Indication: HIV INFECTION
     Route: 048
     Dates: start: 20040705, end: 20050331
  9. FANSIDAR [Concomitant]
     Indication: INFECTION PROPHYLAXIS
     Dates: start: 20040401, end: 20040510
  10. CALCIUM FOLINATE [Concomitant]
     Indication: PROPHYLAXIS
     Dates: start: 20040401, end: 20040510
  11. BROTIZOLAM [Concomitant]
     Indication: INSOMNIA
     Dates: start: 20040401, end: 20040603
  12. INDOMETHACIN [Concomitant]
     Indication: PHARYNGOLARYNGEAL PAIN
     Route: 048
     Dates: start: 20040401, end: 20040603
  13. INDOMETHACIN [Concomitant]
     Dates: start: 20041001, end: 20041111
  14. FLUCONAZOLE [Concomitant]
     Indication: ORAL CANDIDIASIS
     Dates: start: 20040401, end: 20040405
  15. LOPERAMIDE HYDROCHLORIDE [Concomitant]
     Indication: DIARRHOEA
     Dates: start: 20040603, end: 20040610
  16. LOPERAMIDE HYDROCHLORIDE [Concomitant]
     Indication: PROPHYLAXIS AGAINST DIARRHOEA
     Dates: start: 20040916
  17. PLAUNOTOL [Concomitant]
     Indication: PROPHYLAXIS AGAINST GASTROINTESTINAL ULCER
     Dates: start: 20040705, end: 20041007
  18. DICLOFENAC SODIUM [Concomitant]
     Indication: PROPHYLAXIS AGAINST GASTROINTESTINAL ULCER
     Dates: start: 20040705, end: 20041007
  19. ZOPICLONE [Concomitant]
     Indication: INSOMNIA
     Dates: start: 20040705, end: 20041007
  20. ZOPICLONE [Concomitant]
     Dates: start: 20041112
  21. ESTAZOLAM [Concomitant]
     Indication: INSOMNIA
     Dates: start: 20040916, end: 20040930
  22. NITRAZEPAM [Concomitant]
     Indication: INSOMNIA
     Dates: start: 20041008, end: 20041021
  23. FLURAZEPAM HCL [Concomitant]
     Indication: INSOMNIA
     Dates: start: 20041022, end: 20050113
  24. LOXOPROFEN SODIUM [Concomitant]
     Indication: ORAL PAIN
     Dates: start: 20050124
  25. FLUNITRAZEPAM [Concomitant]
     Indication: INSOMNIA
     Dates: start: 20050329, end: 20050331

REACTIONS (4)
  - HEPATIC FUNCTION ABNORMAL [None]
  - HYPERLACTACIDAEMIA [None]
  - MALAISE [None]
  - WHITE BLOOD CELL COUNT DECREASED [None]
